FAERS Safety Report 5814925-3 (Version None)
Quarter: 2008Q3

REPORT INFORMATION
  Report Type: 
  Country: None (occurrence: None)
  Receive Date: 20080718
  Receipt Date: 20080708
  Transmission Date: 20090109
  Serious: Yes (Hospitalization, Other)
  Sender: FDA-Public Use
  Company Number: PHHY2008JP13608

PATIENT

DRUGS (4)
  1. NEORAL [Suspect]
     Indication: PSORIASIS
     Dosage: 150 MG PER DAY
     Route: 048
  2. NEORAL [Suspect]
     Dosage: 200 MG PER DAY
     Route: 048
  3. NEORAL [Suspect]
     Dosage: 250 MG PER DAY
     Route: 048
  4. NEORAL [Suspect]
     Dosage: 200 MG PER DAY
     Route: 048

REACTIONS (4)
  - DRUG LEVEL INCREASED [None]
  - FALL [None]
  - HYPERTENSION [None]
  - INJURY [None]
